FAERS Safety Report 15346145 (Version 2)
Quarter: 2024Q3

REPORT INFORMATION
  Report Type: Report from Study
  Country: FR (occurrence: FR)
  Receive Date: 20180904
  Receipt Date: 20240920
  Transmission Date: 20241017
  Serious: Yes (Other)
  Sender: TEVA
  Company Number: FR-EMA-DD-20180821-NSINGHEVHP-132508

PATIENT
  Age: 67 Year
  Sex: Female
  Weight: 55 kg

DRUGS (17)
  1. IRINOTECAN [Suspect]
     Active Substance: IRINOTECAN
     Indication: Rectal cancer metastatic
     Dosage: TIME INTERVAL: CYCLICAL: UNK
     Route: 042
     Dates: start: 20120412
  2. IRINOTECAN [Suspect]
     Active Substance: IRINOTECAN
     Indication: Rectal cancer metastatic
     Dosage: TIME INTERVAL: CYCLICAL: 280 MG, CYCLIC, IRINOTECAN HCL
     Route: 042
     Dates: start: 20120801, end: 20120829
  3. IRINOTECAN [Suspect]
     Active Substance: IRINOTECAN
     Indication: Rectal cancer metastatic
     Dosage: TIME INTERVAL: CYCLICAL: 280 MG, CYCLIC UNK, IRINOTECAN HCL
     Route: 042
     Dates: start: 20120814
  4. FLUOROURACIL [Suspect]
     Active Substance: FLUOROURACIL
     Indication: Rectal cancer metastatic
     Dosage: TIME INTERVAL: CYCLICAL: 650 MG, CYCLIC, FLUOROURACILE PFIZER
     Route: 042
     Dates: start: 20120822, end: 20120829
  5. FLUOROURACIL [Suspect]
     Active Substance: FLUOROURACIL
     Indication: Rectal cancer metastatic
     Dosage: TIME INTERVAL: CYCLICAL: FLUOROURACILE PFIZER, 3750 MG, CYCLIC
     Route: 042
     Dates: start: 20120801, end: 20120829
  6. FLUOROURACIL [Suspect]
     Active Substance: FLUOROURACIL
     Indication: Rectal cancer metastatic
     Dosage: TIME INTERVAL: CYCLICAL: FLUOROURACILE PFIZER, 650 MG, CYCLIC
     Route: 042
     Dates: start: 20120814
  7. FLUOROURACIL [Suspect]
     Active Substance: FLUOROURACIL
     Indication: Rectal cancer metastatic
     Dosage: TIME INTERVAL: CYCLICAL: FLUOROURACILE PFIZER, 600 MG, CYCLIC
     Route: 042
     Dates: start: 20120801
  8. FLUOROURACIL [Suspect]
     Active Substance: FLUOROURACIL
     Indication: Rectal cancer metastatic
     Dosage: TIME INTERVAL: CYCLICAL: 3750 MG, CYCLIC,FLUOROURACILE PFIZER
     Route: 042
     Dates: start: 20120814
  9. FLUOROURACIL [Suspect]
     Active Substance: FLUOROURACIL
     Indication: Rectal cancer metastatic
     Dosage: TIME INTERVAL: CYCLICAL: FLUOROURACILE PFIZER, UNK
     Route: 042
     Dates: start: 20120412
  10. DOXYCYCLINE [Concomitant]
     Active Substance: DOXYCYCLINE\DOXYCYCLINE HYCLATE
     Indication: Dermatitis acneiform
     Dosage: UNK
     Route: 065
     Dates: end: 201207
  11. LEUCOVORIN [Suspect]
     Active Substance: LEUCOVORIN\LEUCOVORIN CALCIUM
     Indication: Rectal cancer metastatic
     Dosage: UNK
     Route: 065
     Dates: start: 20120412
  12. ERBITUX [Suspect]
     Active Substance: CETUXIMAB
     Indication: Rectal cancer metastatic
     Dosage: TIME INTERVAL: CYCLICAL: 390 MG, CYCLIC
     Route: 042
     Dates: start: 20120808
  13. ERBITUX [Suspect]
     Active Substance: CETUXIMAB
     Indication: Rectal cancer metastatic
     Dosage: TIME INTERVAL: CYCLICAL: 390 MG, CYCLIC
     Route: 042
     Dates: start: 20120822
  14. ERBITUX [Suspect]
     Active Substance: CETUXIMAB
     Indication: Rectal cancer metastatic
     Dosage: TIME INTERVAL: CYCLICAL: 390 MG, CYCLIC
     Route: 042
     Dates: start: 20120801
  15. ERBITUX [Suspect]
     Active Substance: CETUXIMAB
     Indication: Rectal cancer metastatic
     Dosage: TIME INTERVAL: CYCLICAL: UNK
     Route: 042
     Dates: start: 20120412
  16. ERBITUX [Suspect]
     Active Substance: CETUXIMAB
     Indication: Rectal cancer metastatic
     Dosage: TIME INTERVAL: CYCLICAL: 315 MG, CYCLIC
     Route: 042
     Dates: start: 20120905
  17. ERBITUX [Suspect]
     Active Substance: CETUXIMAB
     Indication: Rectal cancer metastatic
     Dosage: TIME INTERVAL: CYCLICAL: 390 MG, CYCLIC
     Route: 042
     Dates: start: 20120814

REACTIONS (1)
  - Photosensitivity reaction [Recovering/Resolving]

NARRATIVE: CASE EVENT DATE: 20120719
